FAERS Safety Report 7521724-3 (Version None)
Quarter: 2011Q2

REPORT INFORMATION
  Report Type: 
  Country: None (occurrence: None)
  Receive Date: 20110524
  Receipt Date: 20110517
  Transmission Date: 20111010
  Serious: Yes (Hospitalization, Other)
  Sender: FDA-Public Use
  Company Number: 2009-198567-NL

PATIENT
  Age: 21 Year
  Sex: Female
  Weight: 69.4003 kg

DRUGS (4)
  1. NUVARING [Suspect]
     Indication: CONTRACEPTION
     Dates: start: 20061221
  2. CEPHALEXIN [Concomitant]
  3. MIRENA [Suspect]
     Indication: CONTRACEPTION
     Dates: start: 20091229
  4. AMITRIPTYLENE [Concomitant]

REACTIONS (45)
  - HEADACHE [None]
  - PARAESTHESIA [None]
  - DYSPAREUNIA [None]
  - PREGNANCY WITH CONTRACEPTIVE DEVICE [None]
  - DIARRHOEA [None]
  - VIRAL UPPER RESPIRATORY TRACT INFECTION [None]
  - PAIN IN EXTREMITY [None]
  - ANAEMIA [None]
  - COUGH [None]
  - DRUG EXPOSURE DURING PREGNANCY [None]
  - DECREASED APPETITE [None]
  - DEPRESSED MOOD [None]
  - GASTROENTERITIS [None]
  - VAGINITIS BACTERIAL [None]
  - CONTUSION [None]
  - WEIGHT DECREASED [None]
  - MYALGIA [None]
  - MENSTRUATION DELAYED [None]
  - RHINITIS ALLERGIC [None]
  - APPENDICECTOMY [None]
  - HAEMOGLOBIN DECREASED [None]
  - CHEST PAIN [None]
  - ESCHERICHIA TEST POSITIVE [None]
  - MYOCARDIAL INFARCTION [None]
  - VOMITING [None]
  - HYPEREMESIS GRAVIDARUM [None]
  - NAUSEA [None]
  - PELVIC PAIN [None]
  - ABDOMINAL PAIN [None]
  - BRONCHITIS [None]
  - HYPOAESTHESIA [None]
  - MELAENA [None]
  - ADNEXA UTERI CYST [None]
  - VIRAL INFECTION [None]
  - MIGRAINE [None]
  - MENORRHAGIA [None]
  - PULMONARY EMBOLISM [None]
  - PYREXIA [None]
  - DYSMENORRHOEA [None]
  - BRONCHOSPASM [None]
  - DRUG DOSE OMISSION [None]
  - ASTHENIA [None]
  - MUSCULOSKELETAL PAIN [None]
  - PERITONEAL NEOPLASM [None]
  - COLONIC POLYP [None]
